FAERS Safety Report 20360108 (Version 1)
Quarter: 2022Q1

REPORT INFORMATION
  Report Type: Spontaneous
  Country: US (occurrence: US)
  Receive Date: 20220121
  Receipt Date: 20220121
  Transmission Date: 20220423
  Serious: Yes (Other)
  Sender: FDA-Public Use
  Company Number: US-BoehringerIngelheim-2022-BI-108622

PATIENT
  Age: 88 Year
  Sex: Male

DRUGS (1)
  1. TRADJENTA [Suspect]
     Active Substance: LINAGLIPTIN
     Indication: Cardiac disorder
     Route: 048
     Dates: start: 20210105, end: 20220118

REACTIONS (1)
  - Cardiac pacemaker insertion [Recovering/Resolving]
